FAERS Safety Report 9352835 (Version 1)
Quarter: 2013Q2

REPORT INFORMATION
  Report Type: Spontaneous
  Country: JP (occurrence: JP)
  Receive Date: 20130618
  Receipt Date: 20130618
  Transmission Date: 20140414
  Serious: Yes (Hospitalization, Other)
  Sender: FDA-Public Use
  Company Number: JP-ACCORD-018119

PATIENT
  Age: 20 Year
  Sex: Male

DRUGS (9)
  1. TACROLIMUS [Suspect]
     Indication: PROPHYLAXIS AGAINST GRAFT VERSUS HOST DISEASE
     Dosage: 5 MG/DAY
     Route: 048
  2. MYCOPHENOLATE MOFETIL [Concomitant]
     Indication: PROPHYLAXIS AGAINST GRAFT VERSUS HOST DISEASE
     Dosage: 25 MG/KG/DAY STARTING ON DAY  ZERO
     Route: 048
  3. MEROPENEM [Concomitant]
  4. PREDNISOLONE [Concomitant]
     Indication: PRE-ENGRAFTMENT IMMUNE REACTION
  5. GRANULOCYTE COLONY STIMULATING FACT [Concomitant]
     Dosage: ON DAY ONE
  6. FLUCONAZOLE [Concomitant]
     Indication: ANTIFUNGAL PROPHYLAXIS
  7. URSODEOXYCHOLIC ACID [Concomitant]
     Indication: VENOOCCLUSIVE LIVER DISEASE
  8. TACROLIMUS [Suspect]
     Indication: PROPHYLAXIS AGAINST GRAFT VERSUS HOST DISEASE
     Dosage: 0.03 MG/KG/DAY (1.5 MG/DAY PER BODY.) ON DAY ONE
     Route: 042
  9. CYCLOPHOSPHAMIDE [Concomitant]

REACTIONS (3)
  - Inappropriate antidiuretic hormone secretion [Recovered/Resolved]
  - Human herpesvirus 6 infection [Recovered/Resolved]
  - Off label use [Unknown]
